FAERS Safety Report 5209491-X (Version None)
Quarter: 2007Q1

REPORT INFORMATION
  Report Type: 
  Country: None (occurrence: None)
  Receive Date: 20070116
  Receipt Date: 20070105
  Transmission Date: 20070707
  Serious: Yes (Hospitalization)
  Sender: FDA-Public Use
  Company Number: FR-PFIZER INC-2007002879

PATIENT
  Age: 72 Year
  Sex: Male
  Weight: 82 kg

DRUGS (6)
  1. ALDACTONE [Suspect]
     Indication: ESSENTIAL HYPERTENSION
     Route: 048
     Dates: start: 20061108, end: 20061120
  2. TAHOR [Suspect]
     Indication: HYPERLIPIDAEMIA
     Route: 048
  3. TRIATEC [Suspect]
     Indication: ESSENTIAL HYPERTENSION
     Route: 048
     Dates: start: 20061025, end: 20061121
  4. NEXIUM [Suspect]
     Indication: GASTRIC ULCER
     Dosage: DAILY DOSE:40MG-FREQ:DAILY
     Route: 048
     Dates: start: 20061025, end: 20061120
  5. PLAVIX [Concomitant]
     Indication: COAGULOPATHY
     Dosage: TEXT:1 DF-FREQ:DAILY
     Route: 048
  6. PLAVIX [Concomitant]
     Indication: ACUTE MYOCARDIAL INFARCTION

REACTIONS (1)
  - NEUTROPENIA [None]
